FAERS Safety Report 7797000-0 (Version None)
Quarter: 2011Q4

REPORT INFORMATION
  Report Type: 
  Country: None (occurrence: None)
  Receive Date: 20111005
  Receipt Date: 20111005
  Transmission Date: 20120403
  Serious: Yes (Hospitalization, Other)
  Sender: FDA-Public Use
  Company Number: None

PATIENT
  Age: 48 Year
  Sex: Female
  Weight: 107.5 kg

DRUGS (1)
  1. RECLAST [Suspect]
     Indication: OSTEOPOROSIS
     Dosage: 5MG
     Route: 042
     Dates: start: 20110616, end: 20110616

REACTIONS (19)
  - MENTAL STATUS CHANGES [None]
  - SEPSIS [None]
  - BLOOD PHOSPHORUS DECREASED [None]
  - HYPOTENSION [None]
  - FOAMING AT MOUTH [None]
  - RENAL FAILURE ACUTE [None]
  - DIALYSIS [None]
  - URINARY TRACT INFECTION [None]
  - BLOOD CALCIUM DECREASED [None]
  - ATRIAL FIBRILLATION [None]
  - URINE OUTPUT DECREASED [None]
  - ACUTE RESPIRATORY DISTRESS SYNDROME [None]
  - MYOCARDIAL INFARCTION [None]
  - FATIGUE [None]
  - CARDIAC FAILURE CONGESTIVE [None]
  - PNEUMONIA [None]
  - GASTROINTESTINAL HAEMORRHAGE [None]
  - BLOOD POTASSIUM DECREASED [None]
  - BLOOD MAGNESIUM DECREASED [None]
